FAERS Safety Report 22649507 (Version 1)
Quarter: 2023Q2

REPORT INFORMATION
  Report Type: Spontaneous
  Country: US (occurrence: US)
  Receive Date: 20230628
  Receipt Date: 20230628
  Transmission Date: 20230722
  Serious: No
  Sender: FDA-Public Use
  Company Number: US-SA-SAC20230627000834

PATIENT
  Sex: Female

DRUGS (1)
  1. DUPIXENT [Suspect]
     Active Substance: DUPILUMAB
     Dosage: UNK, ONCE EVERY 1-2 MONTHS
     Route: 065

REACTIONS (2)
  - Eye disorder [Unknown]
  - Inappropriate schedule of product administration [Unknown]
